FAERS Safety Report 6593116-5 (Version None)
Quarter: 2010Q1

REPORT INFORMATION
  Report Type: 
  Country: None (occurrence: None)
  Receive Date: 20100222
  Receipt Date: 20100211
  Transmission Date: 20100710
  Serious: Yes (Hospitalization)
  Sender: FDA-Public Use
  Company Number: FR-AMGEN-KDC392059

PATIENT
  Sex: Female

DRUGS (11)
  1. VECTIBIX [Suspect]
     Indication: BREAST CANCER
     Route: 042
     Dates: start: 20100108
  2. ENDOXAN [Suspect]
     Route: 042
     Dates: start: 20100108
  3. FLUOROURACIL [Suspect]
     Route: 042
     Dates: start: 20100108
  4. FARMORUBICIN [Suspect]
     Route: 042
     Dates: start: 20100108
  5. LEVOTHYROX [Concomitant]
  6. ZOPHREN [Concomitant]
  7. SOLUPRED [Concomitant]
  8. MOTILIUM [Concomitant]
  9. DOXYCYCLINE [Concomitant]
  10. BICARBONATE [Concomitant]
  11. TAXOTERE [Concomitant]
     Dates: start: 20100108

REACTIONS (1)
  - FEBRILE BONE MARROW APLASIA [None]
